FAERS Safety Report 13626168 (Version 1)
Quarter: 2017Q2

REPORT INFORMATION
  Report Type: Spontaneous
  Country: US (occurrence: US)
  Receive Date: 20170607
  Receipt Date: 20170607
  Transmission Date: 20170830
  Serious: No
  Sender: FDA-Public Use
  Company Number: US-JNJFOC-20170409004

PATIENT
  Sex: Male

DRUGS (2)
  1. RISPERDAL [Suspect]
     Active Substance: RISPERIDONE
     Indication: ATTENTION DEFICIT/HYPERACTIVITY DISORDER
     Dosage: STARTED AT 15-YEARS AND STOPPED AT THE AGE OF 20-YEARS
     Route: 048
     Dates: start: 2004, end: 2009
  2. RISPERDAL [Suspect]
     Active Substance: RISPERIDONE
     Indication: MENTAL DISORDER
     Dosage: STARTED AT 15-YEARS AND STOPPED AT THE AGE OF 20-YEARS
     Route: 048
     Dates: start: 2004, end: 2009

REACTIONS (4)
  - Off label use [Unknown]
  - Nipple enlargement [Not Recovered/Not Resolved]
  - Product use in unapproved indication [Unknown]
  - Gynaecomastia [Not Recovered/Not Resolved]

NARRATIVE: CASE EVENT DATE: 2004
